FAERS Safety Report 7294036-3 (Version None)
Quarter: 2011Q1

REPORT INFORMATION
  Report Type: 
  Country: None (occurrence: None)
  Receive Date: 20110215
  Receipt Date: 20110102
  Transmission Date: 20110831
  Serious: Yes (Death, Other)
  Sender: FDA-Public Use
  Company Number: US-BAXTER-2010BH003460

PATIENT
  Age: 51 Year
  Sex: Female

DRUGS (7)
  1. HEPARIN SODIUM INJECTION [Suspect]
     Indication: CENTRAL VENOUS CATHETERISATION
     Route: 042
     Dates: start: 20080101, end: 20080201
  2. HEPARIN SODIUM INJECTION [Suspect]
     Indication: THROMBOSIS
     Route: 042
     Dates: start: 20080101, end: 20080201
  3. HEPARIN SODIUM INJECTION [Suspect]
     Route: 065
     Dates: start: 20080201, end: 20080301
  4. VICODIN [Concomitant]
     Indication: PRODUCT USED FOR UNKNOWN INDICATION
     Route: 048
  5. HEPARIN SODIUM INJECTION [Suspect]
     Route: 065
     Dates: start: 20080201, end: 20080301
  6. ARIXTRA [Concomitant]
     Indication: PRODUCT USED FOR UNKNOWN INDICATION
     Route: 065
  7. WARFARIN [Concomitant]
     Indication: PRODUCT USED FOR UNKNOWN INDICATION
     Route: 065

REACTIONS (10)
  - ERYTHEMA [None]
  - HYPOTENSION [None]
  - HYPERCOAGULATION [None]
  - THROMBOSIS [None]
  - OEDEMA PERIPHERAL [None]
  - LYMPHADENOPATHY [None]
  - HYPERSENSITIVITY [None]
  - GANGRENE [None]
  - TONGUE NEOPLASM MALIGNANT STAGE UNSPECIFIED [None]
  - CHEST PAIN [None]
